FAERS Safety Report 19500041 (Version 2)
Quarter: 2021Q3

REPORT INFORMATION
  Report Type: Spontaneous
  Country: US (occurrence: US)
  Receive Date: 20210707
  Receipt Date: 20210803
  Transmission Date: 20211014
  Serious: No
  Sender: FDA-Public Use
  Company Number: US-JNJFOC-20210664406

PATIENT
  Sex: Male
  Weight: 92.16 kg

DRUGS (1)
  1. HALDOL DECANOATE [Suspect]
     Active Substance: HALOPERIDOL DECANOATE
     Indication: PRODUCT USED FOR UNKNOWN INDICATION
     Route: 030
     Dates: start: 1980, end: 1999

REACTIONS (5)
  - Depressed mood [Unknown]
  - Disturbance in social behaviour [Unknown]
  - Adverse drug reaction [Unknown]
  - Drug ineffective [Unknown]
  - Prescribed overdose [Unknown]
